FAERS Safety Report 25322737 (Version 1)
Quarter: 2025Q2

REPORT INFORMATION
  Report Type: Spontaneous
  Country: AU (occurrence: AU)
  Receive Date: 20250516
  Receipt Date: 20250516
  Transmission Date: 20250717
  Serious: Yes (Other)
  Sender: ACCORD
  Company Number: None

PATIENT
  Age: 51 Year
  Sex: Male

DRUGS (3)
  1. TIGECYCLINE [Suspect]
     Active Substance: TIGECYCLINE
     Indication: Product used for unknown indication
  2. AMIKACIN SULFATE [Suspect]
     Active Substance: AMIKACIN SULFATE
     Indication: Product used for unknown indication
  3. LINEZOLID [Suspect]
     Active Substance: LINEZOLID
     Indication: Product used for unknown indication

REACTIONS (8)
  - Decreased appetite [Unknown]
  - Malnutrition [Unknown]
  - Myelosuppression [Unknown]
  - Nausea [Unknown]
  - Neuropathy peripheral [Unknown]
  - Weight decreased [Unknown]
  - Drug effective for unapproved indication [Unknown]
  - Off label use [Unknown]
